FAERS Safety Report 8172910-3 (Version None)
Quarter: 2012Q1

REPORT INFORMATION
  Report Type: 
  Country: None (occurrence: None)
  Receive Date: 20120223
  Receipt Date: 20120212
  Transmission Date: 20120608
  Serious: Yes (Death, Hospitalization)
  Sender: FDA-Public Use
  Company Number: UTC-015357

PATIENT
  Age: 73 Year
  Sex: Female
  Weight: 54.5 kg

DRUGS (7)
  1. TRACLEER [Concomitant]
  2. REMODULIN [Suspect]
     Indication: PULMONARY ARTERIAL HYPERTENSION
     Dosage: SEE IMAGE
     Route: 058
     Dates: start: 20110920
  3. REMODULIN [Suspect]
     Indication: COR PULMONALE CHRONIC
     Dosage: SEE IMAGE
     Route: 058
     Dates: start: 20110920
  4. REMODULIN [Suspect]
     Indication: PULMONARY ARTERIAL HYPERTENSION
     Dosage: SEE IMAGE
     Route: 058
     Dates: start: 20110920
  5. REMODULIN [Suspect]
     Indication: COR PULMONALE CHRONIC
     Dosage: SEE IMAGE
     Route: 058
     Dates: start: 20110920
  6. REVATIO [Concomitant]
  7. DIURETICS (DIURETICS) [Concomitant]

REACTIONS (1)
  - HOSPITALISATION [None]
